FAERS Safety Report 5448812-X (Version None)
Quarter: 2007Q3

REPORT INFORMATION
  Report Type: 
  Country: None (occurrence: None)
  Receive Date: 20070911
  Receipt Date: 20070625
  Transmission Date: 20080115
  Serious: No
  Sender: FDA-Public Use
  Company Number: US-BRISTOL-MYERS SQUIBB COMPANY-13825286

PATIENT
  Age: 61 Year
  Sex: Female
  Weight: 48 kg

DRUGS (11)
  1. EMSAM [Suspect]
     Indication: DEPRESSION
     Dosage: INIT. 6MG/24HR (LACK OF EFFECT) THEN INCREASED TO 9MG/24HR AND DEVEL OTHER AES.THEN DECREASED.
     Route: 062
  2. HORMONE THERAPY [Concomitant]
  3. LEVOXYL [Concomitant]
  4. ADVIL LIQUI-GELS [Concomitant]
  5. CALCIUM [Concomitant]
  6. VITAMIN B COMPLEX CAP [Concomitant]
  7. MILK THISTLE [Concomitant]
  8. FLAXSEED OIL [Concomitant]
  9. HERBAL MIXTURE [Concomitant]
  10. ADVAIR DISKUS 100/50 [Concomitant]
  11. ALLERGY SHOTS [Concomitant]

REACTIONS (8)
  - ANXIETY [None]
  - APPLICATION SITE RASH [None]
  - DIZZINESS [None]
  - DRUG INEFFECTIVE [None]
  - INSOMNIA [None]
  - ORAL INTAKE REDUCED [None]
  - SEXUAL DYSFUNCTION [None]
  - WEIGHT DECREASED [None]
